FAERS Safety Report 7937656-2 (Version None)
Quarter: 2011Q4

REPORT INFORMATION
  Report Type: 
  Country: None (occurrence: None)
  Receive Date: 20111123
  Receipt Date: 20111116
  Transmission Date: 20120403
  Serious: Yes (Other)
  Sender: FDA-Public Use
  Company Number: PHHY2011AU94212

PATIENT
  Sex: Female
  Weight: 88 kg

DRUGS (3)
  1. EFFEXOR [Concomitant]
     Indication: DEPRESSION
     Dosage: 75 MG, DAILY
     Dates: start: 20101201
  2. GILENYA [Suspect]
     Dosage: 0.5 MG, QOD
     Dates: start: 20111002
  3. GILENYA [Suspect]
     Dosage: 1 DF, QD
     Route: 048
     Dates: start: 20110711, end: 20111001

REACTIONS (4)
  - GASTROINTESTINAL STROMAL TUMOUR [None]
  - ANAEMIA [None]
  - INAPPROPRIATE SCHEDULE OF DRUG ADMINISTRATION [None]
  - GASTROINTESTINAL ULCER HAEMORRHAGE [None]
